FAERS Safety Report 10081504 (Version 1)
Quarter: 2014Q2

REPORT INFORMATION
  Report Type: Spontaneous
  Country: US (occurrence: US)
  Receive Date: 20140416
  Receipt Date: 20140416
  Transmission Date: 20141212
  Serious: No
  Sender: FDA-Public Use
  Company Number: US-BAYER-2014-055533

PATIENT
  Sex: Female
  Weight: 58.96 kg

DRUGS (5)
  1. ALEVE SMOOTH GELS [Suspect]
     Indication: ARTHRITIS
     Dosage: 1 DF, BID
     Route: 048
     Dates: start: 201403
  2. ALEVE TABLET [Suspect]
     Indication: ARTHRITIS
     Dosage: 1 DF, BID
     Route: 048
     Dates: start: 201403
  3. EYE DROPS [Concomitant]
  4. SYNTHROID [Concomitant]
  5. ONE-A-DAY [Concomitant]

REACTIONS (2)
  - Incorrect drug administration duration [None]
  - Drug prescribing error [None]
